FAERS Safety Report 6992243-8 (Version None)
Quarter: 2010Q3

REPORT INFORMATION
  Report Type: 
  Country: None (occurrence: None)
  Receive Date: 20100917
  Receipt Date: 20100915
  Transmission Date: 20110219
  Serious: Yes (Other)
  Sender: FDA-Public Use
  Company Number: DE-BRISTOL-MYERS SQUIBB COMPANY-15273428

PATIENT
  Age: 45 Year
  Sex: Female

DRUGS (2)
  1. ABILIFY [Suspect]
     Dosage: ADMINISTERED FOR 3 WEEKS
     Dates: start: 20100809, end: 20100906
  2. VENLAFAXINE HCL [Suspect]
     Dosage: TAKEN FOR 6 MONTH;150MG-75MG-0MG

REACTIONS (1)
  - PSYCHOTIC DISORDER [None]
